FAERS Safety Report 17051349 (Version 1)
Quarter: 2019Q4

REPORT INFORMATION
  Report Type: Spontaneous
  Country: US (occurrence: US)
  Receive Date: 20191120
  Receipt Date: 20191120
  Transmission Date: 20200122
  Serious: Yes (Life-Threatening, Hospitalization, Other)
  Sender: FDA-Public Use
  Company Number: US-ACCORD-160660

PATIENT
  Age: 58 Year
  Sex: Female

DRUGS (2)
  1. PEMETREXED. [Suspect]
     Active Substance: PEMETREXED
     Indication: PERITONEAL MESOTHELIOMA MALIGNANT
  2. CARBOPLATIN. [Suspect]
     Active Substance: CARBOPLATIN
     Indication: PERITONEAL MESOTHELIOMA MALIGNANT

REACTIONS (4)
  - Multiple organ dysfunction syndrome [Unknown]
  - Acute respiratory failure [Unknown]
  - Cardiogenic shock [Unknown]
  - Off label use [Unknown]
